FAERS Safety Report 21733449 (Version 1)
Quarter: 2022Q4

REPORT INFORMATION
  Report Type: Spontaneous
  Country: US (occurrence: US)
  Receive Date: 20221215
  Receipt Date: 20221215
  Transmission Date: 20230112
  Serious: No
  Sender: FDA-Public Use
  Company Number: US-ALVOGEN-2022-ALVOGEN-120834

PATIENT
  Sex: Female

DRUGS (2)
  1. FENTANYL [Suspect]
     Active Substance: FENTANYL
     Indication: Pain
     Dosage: 75 MCG?FREQUENCY- EVERY 2 AND A HALF DAYS TO THREE DAYS
  2. LEVOTHYROXINE [Concomitant]
     Active Substance: LEVOTHYROXINE
     Indication: Thyroid disorder

REACTIONS (6)
  - Skin irritation [Unknown]
  - Skin burning sensation [Unknown]
  - Skin exfoliation [Unknown]
  - Erythema [Unknown]
  - Device adhesion issue [Unknown]
  - Device malfunction [Unknown]
